FAERS Safety Report 10675401 (Version 2)
Quarter: 2015Q3

REPORT INFORMATION
  Report Type: Spontaneous
  Country: DE (occurrence: DE)
  Receive Date: 20141224
  Receipt Date: 20150818
  Transmission Date: 20151125
  Serious: Yes (Death, Life-Threatening, Other)
  Sender: FDA-Public Use
  Company Number: DE-PFIZER INC-2014351697

PATIENT
  Age: 50 Year
  Sex: Male

DRUGS (18)
  1. TREVILOR RETARD [Suspect]
     Active Substance: VENLAFAXINE HYDROCHLORIDE
     Dosage: 150 MG, DAILY
     Route: 048
     Dates: end: 20110406
  2. TREVILOR RETARD [Interacting]
     Active Substance: VENLAFAXINE HYDROCHLORIDE
     Dosage: 75 MG, DAILY
     Route: 048
     Dates: start: 20120316, end: 20120318
  3. RISPERDAL [Interacting]
     Active Substance: RISPERIDONE
     Dosage: 4 MG, DAILY
     Route: 048
     Dates: start: 20120224
  4. CONCOR [Concomitant]
     Active Substance: BISOPROLOL FUMARATE
     Dosage: 5 MG, DAILY
     Route: 048
     Dates: start: 20110414
  5. REMERGIL [Interacting]
     Active Substance: MIRTAZAPINE
     Dosage: 30 MG, DAILY
     Route: 048
     Dates: start: 20120319
  6. CIATYL-Z ACUPHASE [Interacting]
     Active Substance: ZUCLOPENTHIXOL ACETATE
     Dosage: 50 MG, DAILY
     Route: 048
     Dates: start: 20120408
  7. LORAZEPAM. [Concomitant]
     Active Substance: LORAZEPAM
     Dosage: 3 MG, UNK
     Route: 048
     Dates: start: 20120126, end: 20120405
  8. TREVILOR RETARD [Interacting]
     Active Substance: VENLAFAXINE HYDROCHLORIDE
     Dosage: 225 MG, DAILY
     Route: 048
     Dates: start: 20110407, end: 20110417
  9. REMERGIL [Interacting]
     Active Substance: MIRTAZAPINE
     Dosage: 45 MG, DAILY
     Route: 048
     Dates: start: 20110407, end: 20120318
  10. DIPIPERON [Interacting]
     Active Substance: PIPAMPERONE
     Dosage: 20 MG, DAILY
     Route: 048
     Dates: start: 20120321
  11. REMERGIL [Interacting]
     Active Substance: MIRTAZAPINE
     Dosage: 30 MG, DAILY
     Route: 048
     Dates: start: 20110324, end: 20110406
  12. TREVILOR RETARD [Interacting]
     Active Substance: VENLAFAXINE HYDROCHLORIDE
     Dosage: 150 MG, DAILY
     Route: 048
     Dates: start: 20120320
  13. ABILIFY [Interacting]
     Active Substance: ARIPIPRAZOLE
     Dosage: 10 MG, DAILY
     Route: 048
     Dates: start: 20120316
  14. TREVILOR RETARD [Interacting]
     Active Substance: VENLAFAXINE HYDROCHLORIDE
     Dosage: 300 MG, DAILY
     Route: 048
     Dates: start: 20110418, end: 20120315
  15. TREVILOR RETARD [Interacting]
     Active Substance: VENLAFAXINE HYDROCHLORIDE
     Dosage: 112.5 MG, DAILY
     Route: 048
     Dates: start: 20120319, end: 20120319
  16. ABILIFY [Interacting]
     Active Substance: ARIPIPRAZOLE
     Dosage: 15 MG, DAILY
     Route: 048
     Dates: start: 20110728, end: 20120315
  17. RISPERDAL [Interacting]
     Active Substance: RISPERIDONE
     Dosage: 2 MG, DAILY
     Route: 048
     Dates: start: 20120209, end: 20120223
  18. LORAZEPAM. [Concomitant]
     Active Substance: LORAZEPAM
     Dosage: 2.5 MG, DAILY
     Route: 048
     Dates: start: 20120406

REACTIONS (6)
  - Cyanosis [Fatal]
  - Loss of consciousness [Fatal]
  - Agitation [Recovering/Resolving]
  - Aggression [Unknown]
  - Pulse absent [Fatal]
  - Drug interaction [Unknown]

NARRATIVE: CASE EVENT DATE: 20120408
